FAERS Safety Report 6358206-0 (Version None)
Quarter: 2009Q3

REPORT INFORMATION
  Report Type: 
  Country: None (occurrence: None)
  Receive Date: 20090916
  Receipt Date: 20090904
  Transmission Date: 20100115
  Serious: Yes (Hospitalization, Other)
  Sender: FDA-Public Use
  Company Number: US-AVENTIS-200917968US

PATIENT
  Sex: Male

DRUGS (5)
  1. LANTUS [Suspect]
     Indication: TYPE 2 DIABETES MELLITUS
     Route: 058
  2. APIDRA [Suspect]
     Indication: TYPE 2 DIABETES MELLITUS
     Dosage: DOSE: 25-30
     Route: 051
     Dates: start: 20090225
  3. GLIPIZIDE [Concomitant]
  4. LASIX [Concomitant]
     Dosage: DOSE: UNK
  5. GEMFIBROZIL [Concomitant]
     Dosage: DOSE: UNK

REACTIONS (4)
  - ASCITES [None]
  - ATRIOVENTRICULAR BLOCK [None]
  - BLOOD GLUCOSE INCREASED [None]
  - WEIGHT INCREASED [None]
